FAERS Safety Report 6529538-8 (Version None)
Quarter: 2010Q1

REPORT INFORMATION
  Report Type: 
  Country: None (occurrence: None)
  Receive Date: 20100107
  Receipt Date: 20091230
  Transmission Date: 20100710
  Serious: Yes (Hospitalization, Other)
  Sender: FDA-Public Use
  Company Number: US-JNJFOC-20100100855

PATIENT

DRUGS (1)
  1. REMICADE [Suspect]
     Indication: MATERNAL DRUGS AFFECTING FOETUS
     Route: 042

REACTIONS (2)
  - INFANTILE APNOEIC ATTACK [None]
  - PREMATURE BABY [None]
